FAERS Safety Report 6317420-0 (Version None)
Quarter: 2009Q3

REPORT INFORMATION
  Report Type: 
  Country: None (occurrence: None)
  Receive Date: 20090821
  Receipt Date: 20090814
  Transmission Date: 20100115
  Serious: Yes (Other)
  Sender: FDA-Public Use
  Company Number: GB-ELI_LILLY_AND_COMPANY-GB200908003108

PATIENT
  Age: 59 Year
  Weight: 131 kg

DRUGS (18)
  1. BYETTA [Suspect]
     Indication: DIABETES MELLITUS
     Dosage: 10 UG, 2/D
     Route: 065
     Dates: start: 20090220, end: 20090714
  2. AMLODIPINE [Concomitant]
     Dosage: 5 MG, UNKNOWN
     Route: 048
  3. ASPIRIN [Concomitant]
     Dosage: 75 MG, DAILY (1/D)
     Route: 065
  4. ATENOLOL [Concomitant]
     Dosage: 50 MG, 2/D
     Route: 065
  5. BETAHISTINE DIHYDROCHLORIDE [Concomitant]
     Dosage: 16 MG, UNKNOWN
     Route: 065
  6. BETAMETHASONE VALERATE [Concomitant]
     Dosage: 30 G, DAILY (1/D)
     Route: 065
  7. CHONDROITIN [Concomitant]
     Dosage: UNK, UNKNOWN
     Route: 065
  8. CO-CODAMOL [Concomitant]
     Dosage: UNK, UNKNOWN
     Route: 065
  9. DOXAZOSIN MESYLATE [Concomitant]
     Dosage: 2 MG, UNKNOWN
     Route: 048
  10. FUSIDIC ACID [Concomitant]
     Dosage: 30 G, DAILY (1/D)
     Route: 065
  11. GLICLAZIDE [Concomitant]
     Dosage: 80 MG, 2/D
     Route: 065
  12. GLUCOSAMINE [Concomitant]
     Dosage: UNK, UNKNOWN
     Route: 065
  13. METFORMIN HCL [Concomitant]
     Dosage: 1 G, 3/D
     Route: 065
  14. NAPROXEN [Concomitant]
     Dosage: 500 MG, 2/D
     Route: 065
  15. OMEPRAZOLE [Concomitant]
     Dosage: 20 MG, DAILY (1/D)
     Route: 065
  16. PERINDOPRIL ERBUMINE [Concomitant]
     Dosage: 8 MG, DAILY (1/D)
     Route: 065
  17. SIMVASTATIN [Concomitant]
     Dosage: 20 MG, UNKNOWN
     Route: 065
  18. TAMSULOSIN HYDROCHLORIDE [Concomitant]
     Dosage: 400 UG, DAILY (1/D)
     Route: 065

REACTIONS (1)
  - CHEST PAIN [None]
